FAERS Safety Report 8200347-7 (Version None)
Quarter: 2012Q1

REPORT INFORMATION
  Report Type: 
  Country: None (occurrence: None)
  Receive Date: 20120306
  Receipt Date: 20120227
  Transmission Date: 20120608
  Serious: Yes (Disabling)
  Sender: FDA-Public Use
  Company Number: AUR-APL-2012-01144

PATIENT
  Age: 47 Year
  Sex: Male
  Weight: 96.9 kg

DRUGS (16)
  1. AMLODIPINE [Suspect]
     Indication: PRODUCT USED FOR UNKNOWN INDICATION
     Dosage: 5 (5 1 IN 1 D)
     Dates: start: 20120117, end: 20120207
  2. GLYCEROL 2.6% [Concomitant]
  3. OMEPRAZOLE [Concomitant]
  4. SENNA-MINT WAF [Concomitant]
  5. CINCHOCAINE (CINCHOCAINE) [Concomitant]
  6. LAXIDO (MACROGOL) [Concomitant]
  7. OTOMIZE (OTOMIZE) [Concomitant]
  8. NITROGLYCERIN [Concomitant]
  9. RAMIPRIL [Concomitant]
  10. VALPROATE SODIUM [Concomitant]
  11. PROCTOSEDYL (PROCTOSEDYL) [Concomitant]
  12. ASPIRIN [Concomitant]
  13. ACETAMINOPHEN [Concomitant]
  14. BENDROFLUMETHIAZIDE (BENDROFLUMETHIAZIDE) [Concomitant]
  15. BISOPROLOL FUMARATE [Concomitant]
  16. SIMVASTATIN [Concomitant]

REACTIONS (1)
  - EPILEPSY [None]
